FAERS Safety Report 21307758 (Version 2)
Quarter: 2022Q4

REPORT INFORMATION
  Report Type: Report from Study
  Country: MX (occurrence: MX)
  Receive Date: 20220908
  Receipt Date: 20221019
  Transmission Date: 20230113
  Serious: Yes (Disabling)
  Sender: FDA-Public Use
  Company Number: MX-NOVARTISPH-NVSC2022MX011728

PATIENT
  Age: 63 Year
  Sex: Female
  Weight: 62 kg

DRUGS (3)
  1. TASIGNA [Suspect]
     Active Substance: NILOTINIB
     Indication: Chronic myeloid leukaemia
     Dosage: 400 MG, Q12H
     Route: 048
     Dates: end: 202111
  2. TASIGNA [Suspect]
     Active Substance: NILOTINIB
     Dosage: UNK
     Route: 048
     Dates: start: 20220131
  3. TASIGNA [Suspect]
     Active Substance: NILOTINIB
     Dosage: UNK
     Route: 048

REACTIONS (28)
  - Cervical vertebral fracture [Unknown]
  - Road traffic accident [Unknown]
  - Fall [Not Recovered/Not Resolved]
  - Bone deformity [Unknown]
  - Influenza [Recovered/Resolved]
  - Hunger [Recovering/Resolving]
  - Pain in extremity [Unknown]
  - Nervousness [Unknown]
  - Feeling abnormal [Unknown]
  - Skin injury [Unknown]
  - Thermal burn [Unknown]
  - Tendon rupture [Unknown]
  - Pulmonary pain [Unknown]
  - Inflammation [Unknown]
  - Musculoskeletal discomfort [Unknown]
  - Dysphonia [Unknown]
  - Weight abnormal [Unknown]
  - Arthralgia [Unknown]
  - Neck pain [Unknown]
  - Fatigue [Unknown]
  - Feeling hot [Recovered/Resolved]
  - Malaise [Unknown]
  - Decreased appetite [Recovering/Resolving]
  - Weight decreased [Recovered/Resolved]
  - Dizziness [Unknown]
  - Headache [Unknown]
  - Pain [Unknown]
  - Product supply issue [Recovered/Resolved]

NARRATIVE: CASE EVENT DATE: 20211101
